FAERS Safety Report 6451495-3 (Version None)
Quarter: 2009Q4

REPORT INFORMATION
  Report Type: 
  Country: None (occurrence: None)
  Receive Date: 20091123
  Receipt Date: 20090706
  Transmission Date: 20100525
  Serious: No
  Sender: FDA-Public Use
  Company Number: US-BRISTOL-MYERS SQUIBB COMPANY-14694970

PATIENT
  Age: 68 Year
  Sex: Male

DRUGS (1)
  1. AVALIDE [Suspect]
     Indication: HYPERTENSION
     Dosage: 1DF=300MG/12.5MG;IN THE MORNING

REACTIONS (2)
  - FATIGUE [None]
  - INSOMNIA [None]
